FAERS Safety Report 13301162 (Version 1)
Quarter: 2017Q1

REPORT INFORMATION
  Report Type: Spontaneous
  Country: US (occurrence: US)
  Receive Date: 20170306
  Receipt Date: 20170306
  Transmission Date: 20170428
  Serious: No
  Sender: FDA-Public Use
  Company Number: None

PATIENT
  Age: 60 Year
  Sex: Female

DRUGS (1)
  1. LIDOCAINE. [Suspect]
     Active Substance: LIDOCAINE
     Route: 062
     Dates: start: 20170223, end: 20170306

REACTIONS (2)
  - Product adhesion issue [None]
  - Drug effect decreased [None]

NARRATIVE: CASE EVENT DATE: 20170306
